FAERS Safety Report 20658352 (Version 1)
Quarter: 2022Q1

REPORT INFORMATION
  Report Type: Spontaneous
  Country: None (occurrence: CN)
  Receive Date: 20220331
  Receipt Date: 20220331
  Transmission Date: 20220424
  Serious: Yes (Hospitalization)
  Sender: FDA-Public Use
  Company Number: CN-Jiangsu Hengrui Medicine Co., Ltd.-2127275

PATIENT
  Age: 33 Year
  Sex: Male
  Weight: 59.3 kg

DRUGS (3)
  1. GABAPENTIN [Suspect]
     Active Substance: GABAPENTIN
     Indication: Herpes zoster
     Dates: start: 20220217, end: 20220219
  2. ACYCLOVIR [Suspect]
     Active Substance: ACYCLOVIR
     Route: 041
     Dates: start: 20220217, end: 20220221
  3. AMINO ACIDS [Suspect]
     Active Substance: AMINO ACIDS
     Dates: start: 20220214, end: 20220303

REACTIONS (3)
  - Listless [Recovering/Resolving]
  - Dizziness [Recovering/Resolving]
  - Tremor [Recovering/Resolving]

NARRATIVE: CASE EVENT DATE: 20220218
